FAERS Safety Report 7548585-0 (Version None)
Quarter: 2011Q2

REPORT INFORMATION
  Report Type: 
  Country: None (occurrence: None)
  Receive Date: 20110608
  Receipt Date: 20110531
  Transmission Date: 20111010
  Serious: Yes (Other)
  Sender: FDA-Public Use
  Company Number: ACO_20830_2010

PATIENT
  Age: 61 Year
  Sex: Female

DRUGS (6)
  1. AMPYRA [Suspect]
  2. SYMMETREL [Concomitant]
  3. AMPYRA [Suspect]
     Indication: PRODUCT USED FOR UNKNOWN INDICATION
     Dosage: 10 MG, BID (PATIENT TOOK BOTH PILLS IN THE MORNING), ORAL
     Route: 048
     Dates: start: 20101020, end: 20101207
  4. OXYBUTYNIN (OXYBUTYNIN) [Concomitant]
  5. BACLOFEN [Concomitant]
  6. TIZANIDINE HCL [Concomitant]

REACTIONS (3)
  - ACCIDENTAL OVERDOSE [None]
  - LOSS OF CONSCIOUSNESS [None]
  - PERSONALITY CHANGE [None]
